FAERS Safety Report 9947747 (Version 1)
Quarter: 2014Q1

REPORT INFORMATION
  Report Type: Report from Study
  Country: US (occurrence: US)
  Receive Date: 20140303
  Receipt Date: 20140303
  Transmission Date: 20141002
  Serious: No
  Sender: FDA-Public Use
  Company Number: US-ABBVIE-13P-163-1060734-00

PATIENT
  Age: 30 Year
  Sex: Female

DRUGS (7)
  1. HUMIRA [Suspect]
     Indication: PSORIASIS
     Dates: start: 20121218, end: 20121218
  2. HUMIRA [Suspect]
     Indication: PSORIATIC ARTHROPATHY
     Dates: start: 20121226
  3. REQUIP [Concomitant]
     Indication: RESTLESS LEGS SYNDROME
     Dosage: 1/2 TABLET DAILY
  4. IBUPROFEN [Concomitant]
     Indication: ARTHRALGIA
     Dosage: EVERY OTHER DAY
  5. ALEVE [Concomitant]
     Indication: ARTHRALGIA
     Dosage: EVERY OTHER DAY
  6. MUCINEX [Concomitant]
     Indication: PRODUCT USED FOR UNKNOWN INDICATION
  7. COLD REMEDIES [Concomitant]
     Indication: PRODUCT USED FOR UNKNOWN INDICATION

REACTIONS (5)
  - Wrong technique in drug usage process [Unknown]
  - Incorrect dose administered [Unknown]
  - Hyperhidrosis [Unknown]
  - Injection site laceration [Unknown]
  - Injection site haemorrhage [Unknown]
